FAERS Safety Report 6566700-2 (Version None)
Quarter: 2010Q1

REPORT INFORMATION
  Report Type: 
  Country: None (occurrence: None)
  Receive Date: 20100202
  Receipt Date: 20100122
  Transmission Date: 20100710
  Serious: Yes (Death, Other)
  Sender: FDA-Public Use
  Company Number: NL-JNJFOC-20100107516

PATIENT
  Sex: Female

DRUGS (5)
  1. REMICADE [Suspect]
     Indication: SWEAT GLAND INFECTION
     Route: 042
  2. REMICADE [Suspect]
     Route: 042
  3. METOPROLOL TARTRATE [Concomitant]
  4. SIMVASTATIN [Concomitant]
  5. TRISPORAL [Concomitant]

REACTIONS (5)
  - DEATH [None]
  - MALAISE [None]
  - POST PROCEDURAL HAEMORRHAGE [None]
  - SURGERY [None]
  - SYNCOPE [None]
